FAERS Safety Report 23742358 (Version 1)
Quarter: 2024Q2

REPORT INFORMATION
  Report Type: Spontaneous
  Country: US (occurrence: None)
  Receive Date: 20240413
  Receipt Date: 20240413
  Transmission Date: 20240716
  Serious: Yes (Death, Hospitalization)
  Sender: FDA-Public Use
  Company Number: None

PATIENT
  Age: 10 Year
  Sex: Male
  Weight: 27.7 kg

DRUGS (3)
  1. METHOTREXATE [Suspect]
     Active Substance: METHOTREXATE
     Dates: start: 20210401, end: 20231023
  2. PREDNISONE [Concomitant]
     Active Substance: PREDNISONE
  3. VINCRISTINE SULFATE [Concomitant]
     Active Substance: VINCRISTINE SULFATE

REACTIONS (16)
  - Septic shock [None]
  - Escherichia infection [None]
  - Alpha haemolytic streptococcal infection [None]
  - Acute respiratory failure [None]
  - Pulmonary oedema [None]
  - Hypoalbuminaemia [None]
  - Gastrointestinal haemorrhage [None]
  - Colitis [None]
  - Colitis [None]
  - Encephalopathy [None]
  - Septic cerebral embolism [None]
  - Brain abscess [None]
  - Stridor [None]
  - Respiratory failure [None]
  - Unresponsive to stimuli [None]
  - Apnoea [None]

NARRATIVE: CASE EVENT DATE: 20240409
